FAERS Safety Report 19448479 (Version 3)
Quarter: 2021Q2

REPORT INFORMATION
  Report Type: Other
  Country: BD (occurrence: BD)
  Receive Date: 20210622
  Receipt Date: 20210630
  Transmission Date: 20210717
  Serious: Yes (Other)
  Sender: FDA-Public Use
  Company Number: BD-ROCHE-2851584

PATIENT
  Age: 44 Year
  Sex: Female
  Weight: 70 kg

DRUGS (21)
  1. LIPOSOMAL DOXORUBICIN [Suspect]
     Active Substance: DOXORUBICIN HYDROCHLORIDE
     Indication: OVARIAN CANCER
     Dosage: RECEIVED FIRST CYCLE
     Route: 042
     Dates: start: 20210208
  2. AVASTIN [Suspect]
     Active Substance: BEVACIZUMAB
     Dosage: 1050 MG IN 250 ML NORMAL SALINE IV OVER 1 HOUR.
     Route: 042
     Dates: start: 20210426
  3. AVASTIN [Suspect]
     Active Substance: BEVACIZUMAB
     Route: 065
  4. CARBOPLATIN. [Suspect]
     Active Substance: CARBOPLATIN
     Indication: OVARIAN CANCER
     Route: 042
  5. AVASTIN [Suspect]
     Active Substance: BEVACIZUMAB
     Indication: OVARIAN CANCER
     Dosage: RECEIVED 6 CYCLES FOR 12 TO 15 MONTHS.?ON 23/JAN/2020, COMPLETED INJECTION OF BEVACIZUMAB.
     Route: 042
  6. DIAMICRON MR [Concomitant]
     Active Substance: GLICLAZIDE
     Dosage: 1 TABLET AT MORING
     Route: 048
  7. NEBIVOLOL. [Concomitant]
     Active Substance: NEBIVOLOL
     Dosage: AT NOON
     Route: 048
  8. MONTELUKAST [Concomitant]
     Active Substance: MONTELUKAST SODIUM
     Dosage: AT NIGHT
     Route: 048
  9. OLAPARIB. [Concomitant]
     Active Substance: OLAPARIB
  10. GALVUS MET [Concomitant]
     Active Substance: METFORMIN HYDROCHLORIDE\VILDAGLIPTIN
     Dosage: 50/500, HALF TABLET
     Route: 048
  11. OMEPRAZOLE. [Concomitant]
     Active Substance: OMEPRAZOLE
     Dosage: BEFORE MEAL
     Route: 048
  12. LOSARTAN POTASSIUM. [Concomitant]
     Active Substance: LOSARTAN POTASSIUM
     Route: 048
  13. SANDOCAL (BANGLADESH) [Concomitant]
     Dosage: AT NOON
     Route: 048
  14. CARBOPLATIN. [Suspect]
     Active Substance: CARBOPLATIN
     Dosage: AUC=5 IN 250 ML NORMAL SALINE OVER 1 HOUR
     Route: 042
     Dates: start: 20210524
  15. PACLITAXEL. [Suspect]
     Active Substance: PACLITAXEL
     Indication: OVARIAN CANCER
     Route: 042
  16. AVASTIN [Suspect]
     Active Substance: BEVACIZUMAB
     Dosage: 1050 MG IN 250 ML NORMAL SALINE IV OVER 1 HOUR.
     Route: 042
     Dates: start: 20210524
  17. AVASTIN [Suspect]
     Active Substance: BEVACIZUMAB
     Route: 042
     Dates: start: 20210208
  18. CARBOPLATIN. [Suspect]
     Active Substance: CARBOPLATIN
     Dosage: AUC=5 IN 250 ML NORMAL SALINE OVER 1 HOUR
     Route: 042
     Dates: start: 20210426
  19. CARBOPLATIN. [Suspect]
     Active Substance: CARBOPLATIN
     Dosage: AUC=5
     Route: 042
     Dates: start: 20210131
  20. THYROXINE [Concomitant]
     Active Substance: LEVOTHYROXINE
     Dosage: 2 TABLET AT MORNING BEFORE BRECKFAST
     Route: 048
  21. VITAMIN D3 [Concomitant]
     Active Substance: CHOLECALCIFEROL
     Route: 048

REACTIONS (9)
  - Asthenia [Unknown]
  - Pancytopenia [Unknown]
  - Platelet count decreased [Recovering/Resolving]
  - Metastasis [Unknown]
  - Ascites [Unknown]
  - Platelet count decreased [Not Recovered/Not Resolved]
  - Abdominal hernia [Unknown]
  - Anaemia [Unknown]
  - Haemoglobin decreased [Not Recovered/Not Resolved]

NARRATIVE: CASE EVENT DATE: 20210216
